FAERS Safety Report 7149423-0 (Version None)
Quarter: 2010Q4

REPORT INFORMATION
  Report Type: 
  Country: None (occurrence: None)
  Receive Date: 20101209
  Receipt Date: 20101029
  Transmission Date: 20110411
  Serious: No
  Sender: FDA-Public Use
  Company Number: US-KINGPHARMUSA00001-K201001338

PATIENT
  Sex: Female

DRUGS (10)
  1. EMBEDA [Suspect]
     Indication: PAIN
     Dosage: 60 MG, BID
     Route: 048
     Dates: start: 20101004, end: 20101027
  2. GLUCOSAMINE [Concomitant]
  3. IMITREX [Concomitant]
     Indication: MIGRAINE
     Dosage: UNK
  4. BACLOFEN [Concomitant]
     Dosage: 10 MG, TID
     Route: 048
  5. BENICAR [Concomitant]
     Dosage: 20 MG, QD
  6. CRESTOR [Concomitant]
     Dosage: UNK
  7. LOVAZA [Concomitant]
     Dosage: 1 G, QID
  8. TRICOR [Concomitant]
     Dosage: 145 MG, QD
     Route: 048
  9. LORTAB [Concomitant]
     Dosage: 7.5/500, PRN, ORAL
     Route: 048
  10. SYNTHROID [Concomitant]

REACTIONS (6)
  - CHILLS [None]
  - DEPRESSED MOOD [None]
  - DIARRHOEA [None]
  - DRUG INEFFECTIVE [None]
  - DRUG WITHDRAWAL SYNDROME [None]
  - HYPERHIDROSIS [None]
